FAERS Safety Report 8690020 (Version 4)
Quarter: 2013Q1

REPORT INFORMATION
  Report Type: Spontaneous
  Country: US (occurrence: US)
  Receive Date: 20120727
  Receipt Date: 20130107
  Transmission Date: 20140127
  Serious: Yes (Hospitalization, Other)
  Sender: FDA-Public Use
  Company Number: US-ASTRAZENECA-2012SE10201

PATIENT
  Age: 39 Year
  Sex: Female
  Weight: 82.1 kg

DRUGS (25)
  1. PRILOSEC OTC [Suspect]
     Indication: GASTROOESOPHAGEAL REFLUX DISEASE
     Route: 048
  2. SEROQUEL [Suspect]
     Indication: BIPOLAR DISORDER
     Route: 048
  3. SEROQUEL [Suspect]
     Indication: TACHYPHRENIA
     Route: 048
  4. SEROQUEL [Suspect]
     Indication: SCHIZOPHRENIA
     Route: 048
  5. SEROQUEL [Suspect]
     Indication: SLEEP DISORDER
     Route: 048
  6. SEROQUEL [Suspect]
     Indication: BIPOLAR DISORDER
     Route: 048
  7. SEROQUEL [Suspect]
     Indication: TACHYPHRENIA
     Route: 048
  8. SEROQUEL [Suspect]
     Indication: SCHIZOPHRENIA
     Route: 048
  9. SEROQUEL [Suspect]
     Indication: SLEEP DISORDER
     Route: 048
  10. IBUPROFEN [Concomitant]
     Indication: PAIN
     Route: 048
  11. LORAZEPAM [Concomitant]
     Indication: ANXIETY
     Dosage: 0.5 MG PRN BID
     Route: 048
  12. CITALOPRAM [Concomitant]
     Indication: BIPOLAR DISORDER
     Route: 048
  13. CALCIUM WITH D [Concomitant]
     Indication: SUPPLEMENTATION THERAPY
     Route: 048
  14. VITAMIN C [Concomitant]
     Indication: SUPPLEMENTATION THERAPY
     Route: 048
  15. LORATADINE [Concomitant]
     Indication: MULTIPLE ALLERGIES
     Route: 048
  16. B 12 [Concomitant]
     Indication: SUPPLEMENTATION THERAPY
     Route: 060
  17. CHROMIUM CITRATE [Concomitant]
     Indication: SUPPLEMENTATION THERAPY
     Route: 048
     Dates: start: 2010
  18. CHROMIUM CITRATE [Concomitant]
     Indication: HYPERGLYCAEMIA
     Route: 048
     Dates: start: 2010
  19. HYDROMORPHONE [Concomitant]
     Indication: MUSCLE RELAXANT THERAPY
     Route: 048
  20. HYDROMORPHONE [Concomitant]
     Indication: PAIN
     Route: 048
  21. BACLOFEN [Concomitant]
     Indication: BACK DISORDER
     Route: 048
  22. XOPENEX [Concomitant]
     Indication: ASTHMA
     Dosage: 45 MG 2 PUFFS PRN
     Route: 055
  23. HYDROCODONE [Concomitant]
     Indication: BACK DISORDER
     Dosage: DAILY
     Route: 048
  24. ALLERGY RELIEF OTC [Concomitant]
     Indication: MULTIPLE ALLERGIES
     Dosage: DAILY
     Route: 048
     Dates: start: 2012
  25. CANNABIS SATIVA SUBSP. INDICA TOP [Concomitant]
     Dates: start: 2010

REACTIONS (25)
  - Spinal column injury [Unknown]
  - Convulsion [Unknown]
  - Drug dose omission [Unknown]
  - Nasopharyngitis [Unknown]
  - Fall [Unknown]
  - Mood altered [Unknown]
  - Hypoglycaemia [Unknown]
  - Poor quality sleep [Unknown]
  - Hypovitaminosis [Unknown]
  - Agitation [Unknown]
  - Lactose intolerance [Unknown]
  - Weight fluctuation [Unknown]
  - Malaise [Unknown]
  - Learning disability [Unknown]
  - Hunger [Unknown]
  - Tachyphrenia [Recovered/Resolved]
  - Glucose tolerance impaired [Unknown]
  - Arthritis [Unknown]
  - Amnesia [Unknown]
  - Hyperglycaemia [Unknown]
  - Asthenia [Unknown]
  - Weight increased [Unknown]
  - Sleep talking [Unknown]
  - Somnambulism [Unknown]
  - Off label use [Unknown]
